FAERS Safety Report 24579946 (Version 1)
Quarter: 2024Q4

REPORT INFORMATION
  Report Type: Report from Study
  Country: CA (occurrence: CA)
  Receive Date: 20241105
  Receipt Date: 20241105
  Transmission Date: 20250114
  Serious: Yes (Other)
  Sender: SANDOZ
  Company Number: CA-SANDOZ-SDZ2024CA092130

PATIENT
  Sex: Female

DRUGS (1)
  1. HYRIMOZ [Suspect]
     Active Substance: ADALIMUMAB-ADAZ
     Indication: Uveitis
     Dosage: 40MG SC EVERY 2 WEEKS;EVERY TWO  WEEKS, (PRE-FILLED SYRINGE)
     Route: 058
     Dates: start: 20221129

REACTIONS (2)
  - Heart valve operation [Unknown]
  - Inappropriate schedule of product administration [Unknown]
